FAERS Safety Report 7109151-4 (Version None)
Quarter: 2010Q4

REPORT INFORMATION
  Report Type: 
  Country: None (occurrence: None)
  Receive Date: 20101117
  Receipt Date: 20101109
  Transmission Date: 20110411
  Serious: Yes (Death)
  Sender: FDA-Public Use
  Company Number: GB-PFIZER INC-2010146566

PATIENT
  Age: 19 Year
  Sex: Male

DRUGS (6)
  1. IBUPROFEN [Suspect]
  2. PHENYLPROPANOLAMINE HCL [Suspect]
  3. PHENYTOIN [Suspect]
  4. CYCLOBENAZPRINE [Suspect]
  5. CHLORPHENIRAMINE MALEATE [Suspect]
  6. LIDOCAINE [Suspect]

REACTIONS (3)
  - METABOLIC ACIDOSIS [None]
  - MULTIPLE DRUG OVERDOSE [None]
  - TACHYCARDIA [None]
